FAERS Safety Report 6565436-1 (Version None)
Quarter: 2010Q1

REPORT INFORMATION
  Report Type: 
  Country: None (occurrence: None)
  Receive Date: 20100201
  Receipt Date: 20100122
  Transmission Date: 20100710
  Serious: Yes (Other)
  Sender: FDA-Public Use
  Company Number: PHEH2008US08061

PATIENT
  Sex: Female

DRUGS (21)
  1. ESTRADERM [Suspect]
     Dosage: 0.05MG / TWICE WEEKLY
  2. ESTRADERM [Suspect]
     Dosage: 0.1 / BI-WEEKLY
     Dates: start: 19900614
  3. PREMARIN [Suspect]
     Dosage: 1.25 MG
  4. PROVERA [Suspect]
     Dosage: UNK
  5. TOFRANIL [Concomitant]
  6. SYNTHROID [Concomitant]
  7. FLOVENT [Concomitant]
  8. ALBUTEROL [Concomitant]
  9. LEVOTHYROXINE SODIUM [Concomitant]
  10. FORADIL                                 /DEN/ [Concomitant]
  11. DULCOLAX [Concomitant]
  12. SENNA [Concomitant]
  13. ARIMIDEX [Concomitant]
     Dosage: 1 MG, UNK
  14. IMIPRAMINE [Concomitant]
  15. CODEINE [Concomitant]
  16. COUMADIN [Concomitant]
     Dosage: 3 MG, DAILY
  17. HYDROCODONE BITARTRATE AND ACETAMINOPHEN [Concomitant]
     Dosage: 5MG/500MG
  18. FIORINAL [Concomitant]
     Dosage: UNK
  19. AMPICILLIN [Concomitant]
     Dosage: 250 MG
  20. FLONASE [Concomitant]
     Dosage: UNK
  21. PROAIR HFA [Concomitant]
     Dosage: UNK

REACTIONS (48)
  - ABDOMINAL ADHESIONS [None]
  - ABDOMINAL PAIN [None]
  - ADHESION [None]
  - ANXIETY [None]
  - AORTIC ARTERIOSCLEROSIS [None]
  - ASTHENIA [None]
  - ASTHMA [None]
  - AUTOMATIC BLADDER [None]
  - BACK PAIN [None]
  - BONE PAIN [None]
  - BREAST CANCER [None]
  - BREAST LUMP REMOVAL [None]
  - BREAST MASS [None]
  - CARDIAC PACEMAKER INSERTION [None]
  - CENTRAL VENOUS CATHETER REMOVAL [None]
  - CENTRAL VENOUS CATHETERISATION [None]
  - COLONIC POLYP [None]
  - CONNECTIVE TISSUE DISORDER [None]
  - CONSTIPATION [None]
  - COUGH [None]
  - DYSPNOEA EXERTIONAL [None]
  - EXOSTOSIS [None]
  - GASTROOESOPHAGEAL REFLUX DISEASE [None]
  - HAEMORRHOID OPERATION [None]
  - HYPOTHYROIDISM [None]
  - INJURY [None]
  - INTERVERTEBRAL DISC DEGENERATION [None]
  - LUNG INFILTRATION [None]
  - LYMPHADENECTOMY [None]
  - MELANOSIS COLI [None]
  - METASTASES TO LYMPH NODES [None]
  - MIGRAINE [None]
  - MODIFIED RADICAL MASTECTOMY [None]
  - MUSCULOSKELETAL STIFFNESS [None]
  - MYALGIA [None]
  - NEPHROLITHIASIS [None]
  - NIGHT SWEATS [None]
  - OEDEMA PERIPHERAL [None]
  - OSTEOARTHRITIS [None]
  - OVARIAN CYST [None]
  - PAIN IN EXTREMITY [None]
  - PNEUMONIA [None]
  - POLYPECTOMY [None]
  - PYREXIA [None]
  - RECTAL ABSCESS [None]
  - ROTATOR CUFF SYNDROME [None]
  - SURGERY [None]
  - THROMBOSIS [None]
